FAERS Safety Report 9970112 (Version 1)
Quarter: 2014Q1

REPORT INFORMATION
  Report Type: Spontaneous
  Country: US (occurrence: None)
  Receive Date: 20140212
  Receipt Date: 20140212
  Transmission Date: 20141002
  Serious: Yes (Other)
  Sender: FDA-Public Use
  Company Number: 2013SCPR005812

PATIENT
  Age: 60 Year
  Sex: Female

DRUGS (2)
  1. BUPROPION HCL XL [Suspect]
     Indication: DEPRESSION
     Route: 048
     Dates: start: 20130213
  2. ZOLOFT (SERTRALINE HYDROCHLORIDE) [Concomitant]

REACTIONS (4)
  - Depression [None]
  - Drug ineffective [None]
  - Medication residue present [None]
  - Product quality issue [None]
